FAERS Safety Report 6442870-1 (Version None)
Quarter: 2009Q4

REPORT INFORMATION
  Report Type: 
  Country: None (occurrence: None)
  Receive Date: 20091117
  Receipt Date: 20091103
  Transmission Date: 20100525
  Serious: Yes (Hospitalization)
  Sender: FDA-Public Use
  Company Number: US-BRISTOL-MYERS SQUIBB COMPANY-14843593

PATIENT
  Age: 50 Year
  Sex: Female

DRUGS (5)
  1. ONGLYZA TABS [Suspect]
     Indication: DIABETES MELLITUS
     Dates: start: 20090901, end: 20091001
  2. TRICOR [Suspect]
  3. INSULIN [Concomitant]
  4. NARCOTIC NOS [Concomitant]
  5. FISH OIL [Concomitant]

REACTIONS (1)
  - PANCREATITIS [None]
